FAERS Safety Report 7391725-7 (Version None)
Quarter: 2011Q2

REPORT INFORMATION
  Report Type: 
  Country: None (occurrence: None)
  Receive Date: 20110404
  Receipt Date: 20110321
  Transmission Date: 20111010
  Serious: Yes (Hospitalization)
  Sender: FDA-Public Use
  Company Number: US-JNJFOC-20110310127

PATIENT
  Sex: Female
  Weight: 31.75 kg

DRUGS (8)
  1. REMICADE [Suspect]
     Route: 065
  2. REMICADE [Suspect]
     Route: 065
  3. DERMA-SMOOTHE/FS [Concomitant]
  4. REMICADE [Suspect]
     Indication: INFLAMMATORY BOWEL DISEASE
     Route: 065
  5. REMICADE [Suspect]
     Route: 065
  6. HYDROCORTISONE VALERATE [Concomitant]
     Route: 061
  7. IRON [Concomitant]
  8. OTHER THERAPEUTIC PRODUCT UNSPECIFIED [Concomitant]

REACTIONS (1)
  - CROHN'S DISEASE [None]
